FAERS Safety Report 20133300 (Version 1)
Quarter: 2021Q4

REPORT INFORMATION
  Report Type: Report from Study
  Country: US (occurrence: US)
  Receive Date: 20211201
  Receipt Date: 20211201
  Transmission Date: 20220303
  Serious: No
  Sender: FDA-Public Use
  Company Number: US-NOVARTISTESTPH-NVSC2021US273448

PATIENT
  Sex: Male

DRUGS (1)
  1. ENTRESTO [Suspect]
     Active Substance: SACUBITRIL\VALSARTAN
     Indication: Product used for unknown indication
     Dosage: 3.5 DOSAGE FORM (2 TABLETS OF 49/51 MG IN THE MORNING AND 1.5 TABLETS IN THE EVENING)
     Route: 065

REACTIONS (2)
  - Blood pressure decreased [Unknown]
  - Wrong technique in product usage process [Unknown]
